FAERS Safety Report 15038282 (Version 1)
Quarter: 2018Q2

REPORT INFORMATION
  Report Type: Spontaneous
  Country: US (occurrence: US)
  Receive Date: 20180620
  Receipt Date: 20180620
  Transmission Date: 20180711
  Serious: Yes (Hospitalization, Other)
  Sender: FDA-Public Use
  Company Number: US-NOVOPROD-603887

PATIENT
  Age: 60 Year
  Sex: Female

DRUGS (1)
  1. OZEMPIC [Suspect]
     Active Substance: SEMAGLUTIDE
     Indication: DIABETES MELLITUS INADEQUATE CONTROL
     Dosage: UNK
     Route: 058
     Dates: start: 20180522, end: 20180522

REACTIONS (5)
  - Blood pressure decreased [Unknown]
  - Dehydration [Unknown]
  - Vomiting [Unknown]
  - Acute kidney injury [Unknown]
  - Nausea [Unknown]

NARRATIVE: CASE EVENT DATE: 20180523
